FAERS Safety Report 6347945-3 (Version None)
Quarter: 2009Q3

REPORT INFORMATION
  Report Type: 
  Country: None (occurrence: None)
  Receive Date: 20090910
  Receipt Date: 20090903
  Transmission Date: 20100115
  Serious: Yes (Hospitalization)
  Sender: FDA-Public Use
  Company Number: PHEH2009US10449

PATIENT
  Sex: Male

DRUGS (1)
  1. AFINITOR [Suspect]
     Dosage: 10 MG, QD
     Route: 048
     Dates: start: 20090803, end: 20090829

REACTIONS (5)
  - COUGH [None]
  - DEHYDRATION [None]
  - DERMATITIS INFECTED [None]
  - DYSPNOEA [None]
  - PULMONARY OEDEMA [None]
